FAERS Safety Report 4471473-3 (Version None)
Quarter: 2004Q4

REPORT INFORMATION
  Report Type: 
  Country: None (occurrence: None)
  Receive Date: 20041006
  Receipt Date: 20040920
  Transmission Date: 20050328
  Serious: Yes (Death, Hospitalization)
  Sender: FDA-Public Use
  Company Number: 2004-BP-08414RO

PATIENT
  Age: 66 Year
  Sex: Male

DRUGS (2)
  1. DEXAMETHASONE [Suspect]
     Indication: MULTIPLE MYELOMA
     Dosage: CYCLIC: 40 MG/DAY/CYCLE, PO
     Route: 048
     Dates: start: 20030214, end: 20030303
  2. GENASENSE [Suspect]
     Indication: MULTIPLE MYELOMA
     Dosage: CYCLIC: 7 MG/KG/DAY/CYCLE, IV
     Route: 042
     Dates: start: 20030210, end: 20030306

REACTIONS (2)
  - HAEMORRHAGIC STROKE [None]
  - THROMBOCYTOPENIA [None]
